FAERS Safety Report 10387750 (Version 2)
Quarter: 2014Q3

REPORT INFORMATION
  Report Type: Spontaneous
  Country: US (occurrence: US)
  Receive Date: 20140815
  Receipt Date: 20140815
  Transmission Date: 20150326
  Serious: Yes (Hospitalization, Disabling, Other)
  Sender: FDA-Public Use
  Company Number: US-009507513-2010SP028485

PATIENT
  Sex: Female
  Weight: 105.1 kg

DRUGS (3)
  1. NUVARING [Suspect]
     Active Substance: ETHINYL ESTRADIOL\ETONOGESTREL
     Indication: CONTRACEPTION
     Route: 067
     Dates: start: 2001, end: 20080519
  2. NUVARING [Suspect]
     Active Substance: ETHINYL ESTRADIOL\ETONOGESTREL
     Indication: MENSTRUAL CYCLE MANAGEMENT
  3. ADVIL [Concomitant]
     Active Substance: IBUPROFEN
     Dates: end: 20080519

REACTIONS (11)
  - Thrombophlebitis [Unknown]
  - Ear infection [Unknown]
  - Unintended pregnancy [Recovered/Resolved]
  - Asthma [Unknown]
  - Weight decreased [Unknown]
  - Urinary tract infection [Unknown]
  - Pyelonephritis [Unknown]
  - Human chorionic gonadotropin increased [Unknown]
  - Off label use [Unknown]
  - Dyspnoea [Unknown]
  - Deep vein thrombosis [Unknown]

NARRATIVE: CASE EVENT DATE: 20050712
